FAERS Safety Report 11127929 (Version 2)
Quarter: 2015Q2

REPORT INFORMATION
  Report Type: Spontaneous
  Country: JP (occurrence: JP)
  Receive Date: 20150521
  Receipt Date: 20150609
  Transmission Date: 20150821
  Serious: Yes (Other)
  Sender: FDA-Public Use
  Company Number: JP-MYLANLABS-2015M1016671

PATIENT

DRUGS (3)
  1. PACLITAXEL. [Suspect]
     Active Substance: PACLITAXEL
     Indication: THYMOMA MALIGNANT
     Route: 065
  2. CARBOPLATIN. [Suspect]
     Active Substance: CARBOPLATIN
     Dosage: AUC 5 ON DAYS 1-14; CYCLES REPEATED EVERY 3 OR 4W
     Route: 065
     Dates: start: 201211
  3. GIMERACIL W/OTERACIL POTASSIUM/TEGAFUR [Suspect]
     Active Substance: GIMERACIL\OTERACIL\TEGAFUR
     Indication: THYMOMA MALIGNANT
     Dosage: ON DAYS 1-14; CYCLES REPEATED EVERY 3 OR 4W
     Route: 048
     Dates: start: 201211

REACTIONS (6)
  - Hypersensitivity [Unknown]
  - Thrombocytopenia [Unknown]
  - Nausea [Unknown]
  - Neutropenia [Unknown]
  - Decreased appetite [Unknown]
  - Fatigue [Unknown]
